FAERS Safety Report 8895710 (Version 1)
Quarter: 2012Q4

REPORT INFORMATION
  Report Type: Report from Study
  Country: CA (occurrence: CA)
  Receive Date: 20121108
  Receipt Date: 20121108
  Transmission Date: 20130627
  Serious: Yes (Other)
  Sender: FDA-Public Use
  Company Number: CA-JNJFOC-20121016294

PATIENT
  Sex: Male
  Weight: 75 kg

DRUGS (3)
  1. REMICADE [Suspect]
     Indication: CROHN^S DISEASE
     Route: 042
     Dates: start: 20120326
  2. URSODIOL [Concomitant]
     Route: 065
  3. PANTOPRAZOLE [Concomitant]
     Route: 065

REACTIONS (1)
  - Vitreous floaters [Unknown]
